FAERS Safety Report 9224106 (Version 1)
Quarter: 2013Q1

REPORT INFORMATION
  Report Type: Spontaneous
  Country: US (occurrence: None)
  Receive Date: 20120830
  Receipt Date: 20120830
  Transmission Date: 20140127
  Serious: Yes (Other)
  Sender: FDA-Public Use
  Company Number: PHHY2011US59984

PATIENT
  Age: 56 Year
  Sex: Male

DRUGS (1)
  1. EXFORGE (VALSARTAN, AMLODIPINE) TABLET [Suspect]
     Dosage: 160 MG VALS AND 05 MG AMLO, 1 DF, QD

REACTIONS (1)
  - Heart rate increased [None]
